FAERS Safety Report 6785167-2 (Version None)
Quarter: 2010Q2

REPORT INFORMATION
  Report Type: 
  Country: None (occurrence: None)
  Receive Date: 20100618
  Receipt Date: 20100609
  Transmission Date: 20101027
  Serious: Yes (Hospitalization)
  Sender: FDA-Public Use
  Company Number: URSO-2010-064

PATIENT
  Age: 74 Year
  Sex: Male

DRUGS (5)
  1. URSODIOL [Suspect]
     Dosage: 300MG, ORAL
  2. DEPAS (ETILOZAM) [Suspect]
     Dosage: ORAL
     Route: 048
  3. PABRON (BROMHEXINE HYDROCHLORIDE ETC) [Suspect]
  4. BEZATOL SR (BEZAFIBRATE) [Concomitant]
  5. FAMOTIDINE [Concomitant]

REACTIONS (5)
  - BLOOD CREATINE PHOSPHOKINASE INCREASED [None]
  - CARDIAC FAILURE [None]
  - COMA [None]
  - CONVULSION [None]
  - HAEMODIALYSIS [None]
